FAERS Safety Report 7353249-2 (Version None)
Quarter: 2011Q1

REPORT INFORMATION
  Report Type: 
  Country: None (occurrence: None)
  Receive Date: 20110315
  Receipt Date: 20110303
  Transmission Date: 20110831
  Serious: Yes (Disabling)
  Sender: FDA-Public Use
  Company Number: GB-TEVA-269951ISR

PATIENT
  Sex: Male
  Weight: 5 kg

DRUGS (3)
  1. TREOSULFAN [Suspect]
     Indication: BONE MARROW CONDITIONING REGIMEN
     Dosage: 12 G/M2
     Route: 042
     Dates: start: 20110114, end: 20110116
  2. TREOSULFAN [Suspect]
     Indication: OFF LABEL USE
  3. FLUDARA [Suspect]
     Indication: BONE MARROW CONDITIONING REGIMEN
     Route: 042
     Dates: start: 20110114, end: 20110118

REACTIONS (2)
  - CONVULSION [None]
  - HYPERTONIA [None]
